FAERS Safety Report 24057693 (Version 1)
Quarter: 2024Q3

REPORT INFORMATION
  Report Type: Report from Study
  Country: US (occurrence: US)
  Receive Date: 20240706
  Receipt Date: 20240706
  Transmission Date: 20241017
  Serious: Yes (Hospitalization, Other)
  Sender: ABBVIE
  Company Number: US-ABBVIE-5826215

PATIENT
  Sex: Female

DRUGS (1)
  1. IMBRUVICA [Suspect]
     Active Substance: IBRUTINIB
     Indication: Chronic lymphocytic leukaemia
     Route: 048
     Dates: start: 20221222

REACTIONS (6)
  - Splenic infarction [Unknown]
  - Anxiety [Unknown]
  - Neoplasm malignant [Unknown]
  - Fall [Unknown]
  - Chest discomfort [Unknown]
  - Enzyme level increased [Unknown]

NARRATIVE: CASE EVENT DATE: 20220101
